FAERS Safety Report 13788093 (Version 2)
Quarter: 2017Q3

REPORT INFORMATION
  Report Type: Spontaneous
  Country: US (occurrence: US)
  Receive Date: 20170725
  Receipt Date: 20170913
  Transmission Date: 20171127
  Serious: No
  Sender: FDA-Public Use
  Company Number: US-JNJFOC-20170708490

PATIENT
  Sex: Female
  Weight: 79.38 kg

DRUGS (10)
  1. LOSARTAN. [Concomitant]
     Active Substance: LOSARTAN
     Route: 065
  2. VOLTAREN [Concomitant]
     Active Substance: DICLOFENAC SODIUM
     Indication: PAIN
     Route: 065
  3. OMEPRAZOLE. [Concomitant]
     Active Substance: OMEPRAZOLE
     Route: 065
  4. TYLENOL [Concomitant]
     Active Substance: ACETAMINOPHEN
     Indication: DRUG HYPERSENSITIVITY
     Route: 042
  5. MOTRIN [Suspect]
     Active Substance: IBUPROFEN
     Route: 065
  6. CODEINE [Concomitant]
     Active Substance: CODEINE
     Indication: DRUG HYPERSENSITIVITY
     Route: 065
  7. SIMPONI [Suspect]
     Active Substance: GOLIMUMAB
     Indication: PRODUCT USED FOR UNKNOWN INDICATION
     Route: 058
  8. METHOTREXATE. [Concomitant]
     Active Substance: METHOTREXATE
     Route: 065
  9. INDOMETHACIN. [Concomitant]
     Active Substance: INDOMETHACIN
     Route: 065
  10. MOTRIN [Suspect]
     Active Substance: IBUPROFEN
     Indication: PRODUCT USED FOR UNKNOWN INDICATION
     Route: 065

REACTIONS (3)
  - Device malfunction [Unknown]
  - Bronchitis [Unknown]
  - Drug dose omission [Unknown]
